FAERS Safety Report 14933512 (Version 1)
Quarter: 2018Q2

REPORT INFORMATION
  Report Type: Report from Study
  Country: CN (occurrence: CN)
  Receive Date: 20180524
  Receipt Date: 20180524
  Transmission Date: 20180711
  Serious: Yes (Hospitalization)
  Sender: FDA-Public Use
  Company Number: CN-ELI_LILLY_AND_COMPANY-CN201805007261

PATIENT
  Age: 76 Year
  Sex: Male
  Weight: 45 kg

DRUGS (1)
  1. INSULIN, LISPRO [Suspect]
     Active Substance: INSULIN LISPRO
     Indication: TYPE 2 DIABETES MELLITUS
     Dosage: 10 U, BID
     Route: 058

REACTIONS (2)
  - Peripheral swelling [Unknown]
  - Nephropathy [Unknown]

NARRATIVE: CASE EVENT DATE: 2017
